FAERS Safety Report 5963835-X (Version None)
Quarter: 2008Q4

REPORT INFORMATION
  Report Type: 
  Country: None (occurrence: None)
  Receive Date: 20081120
  Receipt Date: 20081112
  Transmission Date: 20090506
  Serious: Yes (Hospitalization, Other)
  Sender: FDA-Public Use
  Company Number: 2008SP017436

PATIENT
  Age: 68 Year
  Sex: Female
  Weight: 69 kg

DRUGS (4)
  1. INTRON A [Suspect]
     Indication: MALIGNANT MELANOMA
     Dosage: 34 UNK; QD; IV
     Route: 042
     Dates: start: 20080811, end: 20080828
  2. ACETAMINOPHEN [Suspect]
     Indication: INFLUENZA LIKE ILLNESS
     Dosage: 2 GM; QD; PO
     Route: 048
     Dates: start: 20080811, end: 20080819
  3. METAMIZOLE (METAMIZOLE) [Suspect]
     Indication: PAIN
     Dosage: QD PO
     Route: 048
     Dates: start: 20080811, end: 20080820
  4. MIANSERIN [Concomitant]

REACTIONS (18)
  - ALANINE AMINOTRANSFERASE INCREASED [None]
  - ASPARTATE AMINOTRANSFERASE INCREASED [None]
  - BLOOD ALBUMIN DECREASED [None]
  - BLOOD CREATINE PHOSPHOKINASE INCREASED [None]
  - BLOOD CREATININE DECREASED [None]
  - BLOOD LACTATE DEHYDROGENASE INCREASED [None]
  - BLOOD THYROID STIMULATING HORMONE INCREASED [None]
  - CONDITION AGGRAVATED [None]
  - DRUG INTERACTION [None]
  - GAMMA-GLUTAMYLTRANSFERASE INCREASED [None]
  - HAEMATOCRIT DECREASED [None]
  - HAEMOGLOBIN DECREASED [None]
  - OEDEMA PERIPHERAL [None]
  - RASH [None]
  - RAYNAUD'S PHENOMENON [None]
  - RED BLOOD CELL COUNT DECREASED [None]
  - SCLERODERMA [None]
  - SWELLING FACE [None]
